APPROVED DRUG PRODUCT: PHENYLBUTAZONE
Active Ingredient: PHENYLBUTAZONE
Strength: 100MG
Dosage Form/Route: CAPSULE;ORAL
Application: A088994 | Product #001
Applicant: SUN PHARMACEUTICAL INDUSTRIES INC
Approved: Dec 4, 1985 | RLD: No | RS: No | Type: DISCN